FAERS Safety Report 14231579 (Version 1)
Quarter: 2017Q4

REPORT INFORMATION
  Report Type: Spontaneous
  Country: US (occurrence: US)
  Receive Date: 20171128
  Receipt Date: 20171128
  Transmission Date: 20180321
  Serious: No
  Sender: FDA-Public Use
  Company Number: US-JNJFOC-20171012350

PATIENT
  Age: 85 Year
  Sex: Female
  Weight: 57.61 kg

DRUGS (5)
  1. ZYRTEC [Suspect]
     Active Substance: CETIRIZINE HYDROCHLORIDE
     Indication: HYPERSENSITIVITY
     Dosage: 1 TABLET
     Route: 048
     Dates: start: 20171010, end: 20171010
  2. LOVASTATIN. [Concomitant]
     Active Substance: LOVASTATIN
     Indication: BLOOD CHOLESTEROL ABNORMAL
     Route: 065
  3. ZYRTEC [Suspect]
     Active Substance: CETIRIZINE HYDROCHLORIDE
     Indication: RASH
     Dosage: 1 TABLET
     Route: 048
     Dates: start: 20171010, end: 20171010
  4. ZYRTEC [Suspect]
     Active Substance: CETIRIZINE HYDROCHLORIDE
     Indication: HYPERSENSITIVITY
     Dosage: 2 TABLETS
     Route: 048
     Dates: start: 20171009, end: 20171009
  5. ZYRTEC [Suspect]
     Active Substance: CETIRIZINE HYDROCHLORIDE
     Indication: RASH
     Dosage: 2 TABLETS
     Route: 048
     Dates: start: 20171009, end: 20171009

REACTIONS (5)
  - Product use in unapproved indication [Recovering/Resolving]
  - Chest discomfort [Recovering/Resolving]
  - Off label use [Recovering/Resolving]
  - Prescribed overdose [Unknown]
  - Chest pain [Recovering/Resolving]

NARRATIVE: CASE EVENT DATE: 20171009
